FAERS Safety Report 10886429 (Version 1)
Quarter: 2015Q1

REPORT INFORMATION
  Report Type: Spontaneous
  Country: US (occurrence: US)
  Receive Date: 20150304
  Receipt Date: 20150304
  Transmission Date: 20150721
  Serious: Yes (Congenital Anomaly, Other)
  Sender: FDA-Public Use
  Company Number: US-APOTEX-2015AP007101

PATIENT
  Age: 0 Day
  Sex: Male

DRUGS (1)
  1. PAXIL [Suspect]
     Active Substance: PAROXETINE HYDROCHLORIDE
     Indication: DEPRESSION
     Dosage: UNK
     Route: 064
     Dates: end: 1995

REACTIONS (7)
  - Cerebellar hypoplasia [Unknown]
  - Mental retardation [Unknown]
  - Periventricular nodular heterotopia [Unknown]
  - Foetal exposure during pregnancy [Unknown]
  - Autism [Unknown]
  - Dandy-Walker syndrome [Unknown]
  - Seizure [Unknown]

NARRATIVE: CASE EVENT DATE: 19950131
